FAERS Safety Report 6610859-5 (Version None)
Quarter: 2010Q1

REPORT INFORMATION
  Report Type: 
  Country: None (occurrence: None)
  Receive Date: 20100219
  Receipt Date: 20100212
  Transmission Date: 20100710
  Serious: Yes (Hospitalization)
  Sender: FDA-Public Use
  Company Number: 2010000832

PATIENT
  Age: 70 Year
  Sex: Male

DRUGS (1)
  1. TREANDA [Suspect]
     Indication: MANTLE CELL LYMPHOMA
     Dosage: 171 MG,EVERY 28 DAYS), INTRAVENOUS
     Route: 042
     Dates: start: 20100211

REACTIONS (6)
  - BACK PAIN [None]
  - DISEASE PROGRESSION [None]
  - INGUINAL HERNIA [None]
  - INTERVERTEBRAL DISC PROTRUSION [None]
  - LYMPHOMA [None]
  - PAIN [None]
